FAERS Safety Report 4626686-4 (Version None)
Quarter: 2005Q2

REPORT INFORMATION
  Report Type: 
  Country: None (occurrence: None)
  Receive Date: 20050405
  Receipt Date: 20050324
  Transmission Date: 20051028
  Serious: Yes (Other)
  Sender: FDA-Public Use
  Company Number: US-JNJFOC-20050306293

PATIENT
  Sex: Female

DRUGS (8)
  1. INFLIXIMAB [Suspect]
     Indication: RHEUMATOID ARTHRITIS
     Route: 042
  2. HYDROCHLOROTHIAZIDE [Concomitant]
  3. THYROID TAB [Concomitant]
  4. VALDECOXIB [Concomitant]
  5. CALCIUM +D [Concomitant]
  6. ASPIRIN [Concomitant]
  7. ALLEGRA [Concomitant]
     Indication: PREMEDICATION
  8. BENADRYL [Concomitant]
     Indication: PREMEDICATION

REACTIONS (1)
  - PALPITATIONS [None]
